FAERS Safety Report 10071115 (Version 1)
Quarter: 2014Q2

REPORT INFORMATION
  Report Type: Spontaneous
  Country: ES (occurrence: ES)
  Receive Date: 20140410
  Receipt Date: 20140410
  Transmission Date: 20141212
  Serious: Yes (Other)
  Sender: FDA-Public Use
  Company Number: ES-WATSON-2014-06775

PATIENT
  Age: 28 Year
  Sex: Male

DRUGS (4)
  1. ACETAZOLAMIDE (WATSON LABORATORIES) [Suspect]
     Indication: HYPERMETROPIA
     Dosage: 250 MG, BID
     Route: 048
  2. MOXIFLOXACIN [Concomitant]
     Indication: HYPERMETROPIA
     Dosage: 0.5 %,Q8H
     Route: 061
  3. TOBRAMYCIN [Concomitant]
     Indication: HYPERMETROPIA
     Dosage: 0.3%, Q6H
     Route: 061
  4. DEXAMETHASONE [Concomitant]
     Indication: PRODUCT USED FOR UNKNOWN INDICATION
     Dosage: 0.1% Q6H
     Route: 061

REACTIONS (1)
  - Choroidal effusion [Recovered/Resolved]
